FAERS Safety Report 7010210-5 (Version None)
Quarter: 2010Q3

REPORT INFORMATION
  Report Type: 
  Country: None (occurrence: None)
  Receive Date: 20100923
  Receipt Date: 20100916
  Transmission Date: 20110219
  Serious: Yes (Other)
  Sender: FDA-Public Use
  Company Number: GB-JNJCH-2010021267

PATIENT
  Sex: Male

DRUGS (1)
  1. LISTERINE ANTISEPTIC MOUTHWASH [Suspect]
     Indication: PRODUCT USED FOR UNKNOWN INDICATION
     Dosage: TEXT:200-250 MILLILITERS
     Route: 048

REACTIONS (3)
  - IMPAIRED DRIVING ABILITY [None]
  - INCORRECT ROUTE OF DRUG ADMINISTRATION [None]
  - INTENTIONAL DRUG MISUSE [None]
